FAERS Safety Report 18815186 (Version 1)
Quarter: 2021Q1

REPORT INFORMATION
  Report Type: Spontaneous
  Country: US (occurrence: US)
  Receive Date: 20210129
  Receipt Date: 20210129
  Transmission Date: 20210419
  Serious: Yes (Hospitalization)
  Sender: FDA-Public Use
  Company Number: None

PATIENT
  Age: 29 Year
  Sex: Male
  Weight: 104 kg

DRUGS (26)
  1. BENADRYL [Concomitant]
     Active Substance: DIPHENHYDRAMINE HYDROCHLORIDE
  2. LEVALBUTEROL. [Concomitant]
     Active Substance: LEVALBUTEROL
  3. PROTONIX [Concomitant]
     Active Substance: PANTOPRAZOLE SODIUM
  4. K?DUR [Concomitant]
     Active Substance: POTASSIUM CHLORIDE
  5. MILRINONE INFUSION [Concomitant]
  6. PRAVASTATIN. [Concomitant]
     Active Substance: PRAVASTATIN
  7. PROGRAF [Concomitant]
     Active Substance: TACROLIMUS
  8. AZITHROMYCIN ANHYDROUS. [Concomitant]
     Active Substance: AZITHROMYCIN ANHYDROUS
  9. SUMBICORT [Concomitant]
  10. BUMEX [Concomitant]
     Active Substance: BUMETANIDE
  11. ALPRAZOLAM. [Concomitant]
     Active Substance: ALPRAZOLAM
  12. ADVAIR HFA [Concomitant]
     Active Substance: FLUTICASONE PROPIONATE\SALMETEROL XINAFOATE
  13. MAGNESIUM [Concomitant]
     Active Substance: MAGNESIUM
  14. MYCOPHENOLATE [Concomitant]
     Active Substance: MYCOPHENOLIC ACID
  15. PREDNISONE. [Concomitant]
     Active Substance: PREDNISONE
  16. AUGMENTIN [Concomitant]
     Active Substance: AMOXICILLIN\CLAVULANATE POTASSIUM
  17. TOPROL XL [Concomitant]
     Active Substance: METOPROLOL SUCCINATE
  18. MONTELUKAST [Concomitant]
     Active Substance: MONTELUKAST SODIUM
  19. ALBUTEROL. [Concomitant]
     Active Substance: ALBUTEROL
  20. PHOSLO [Concomitant]
     Active Substance: CALCIUM ACETATE
  21. BAMLANIVIMAB. [Suspect]
     Active Substance: BAMLANIVIMAB
     Indication: COVID-19
     Route: 042
     Dates: start: 20210120, end: 20210120
  22. COLCHICINE. [Concomitant]
     Active Substance: COLCHICINE
  23. ULORIC [Concomitant]
     Active Substance: FEBUXOSTAT
  24. FLONASE [Concomitant]
     Active Substance: FLUTICASONE PROPIONATE
  25. FOLIC ACID. [Concomitant]
     Active Substance: FOLIC ACID
  26. RESTORIL [Concomitant]
     Active Substance: TEMAZEPAM

REACTIONS (1)
  - Dyspnoea [None]

NARRATIVE: CASE EVENT DATE: 20210121
